FAERS Safety Report 8599675-5 (Version None)
Quarter: 2012Q3

REPORT INFORMATION
  Report Type: 
  Country: None (occurrence: None)
  Receive Date: 20120802
  Receipt Date: 20120723
  Transmission Date: 20120928
  Serious: Yes (Other)
  Sender: FDA-Public Use
  Company Number: 2012P1051145

PATIENT
  Age: 71 Year
  Sex: Female

DRUGS (9)
  1. METRONIDAZOLE [Suspect]
     Indication: PNEUMONIA
     Dosage: IV
     Route: 042
  2. CONVERTING ENZYME INHIBITORS [Concomitant]
  3. UNSPECIFIED DIURETICS [Concomitant]
  4. UNSPECIFIED ANGIOTENSIN UNKNOWN [Concomitant]
  5. OMEPRAZOLE [Suspect]
     Indication: ATRIAL FIBRILLATION
  6. OMEPRAZOLE [Suspect]
     Indication: DYSPNOEA
  7. OMEPRAZOLE [Suspect]
     Indication: ANGINA PECTORIS
  8. OMEPRAZOLE [Suspect]
     Indication: ORTHOPNOEA
  9. UNSPECIFIED BRONCHODILATORS [Concomitant]

REACTIONS (3)
  - ELECTROCARDIOGRAM T WAVE INVERSION [None]
  - DRUG INTERACTION [None]
  - ELECTROCARDIOGRAM QT PROLONGED [None]
